FAERS Safety Report 6789477-4 (Version None)
Quarter: 2010Q2

REPORT INFORMATION
  Report Type: 
  Country: None (occurrence: None)
  Receive Date: 20100624
  Receipt Date: 20100616
  Transmission Date: 20101027
  Serious: Yes (Other)
  Sender: FDA-Public Use
  Company Number: US-BIOGENIDEC-2010BI001324

PATIENT
  Age: 62 Year
  Sex: Male

DRUGS (2)
  1. TYSABRI [Suspect]
     Indication: MULTIPLE SCLEROSIS
     Route: 042
     Dates: start: 20070502, end: 20100422
  2. TYSABRI [Suspect]

REACTIONS (5)
  - BENIGN PROSTATIC HYPERPLASIA [None]
  - FATIGUE [None]
  - MEDIASTINUM NEOPLASM [None]
  - RENAL CYST [None]
  - THYMOMA [None]
